FAERS Safety Report 8571600-2 (Version None)
Quarter: 2012Q3

REPORT INFORMATION
  Report Type: 
  Country: None (occurrence: None)
  Receive Date: 20120806
  Receipt Date: 20120730
  Transmission Date: 20120928
  Serious: Yes (Death, Hospitalization)
  Sender: FDA-Public Use
  Company Number: KR-JNJFOC-20120801585

PATIENT
  Sex: Female

DRUGS (1)
  1. DORIPENEM MONOHYDRATE [Suspect]
     Indication: PNEUMONIA
     Route: 042
     Dates: start: 20120721, end: 20120722

REACTIONS (2)
  - SEPSIS [None]
  - PNEUMONIA [None]
